FAERS Safety Report 15386934 (Version 1)
Quarter: 2018Q4

REPORT INFORMATION
  Report Type: Spontaneous
  Country: CH (occurrence: CH)
  Receive Date: 20180914
  Receipt Date: 20180914
  Transmission Date: 20190204
  Serious: Yes (Hospitalization, Other)
  Sender: FDA-Public Use
  Company Number: CH-BAXTER-2018BAX023469

PATIENT
  Age: 26 Year
  Sex: Female

DRUGS (33)
  1. UROMITEXAN 400 ML, L?SUNG ZUR INTRAVEN?SEN ANWENDUNG [Suspect]
     Active Substance: MESNA
     Indication: ACUTE LYMPHOCYTIC LEUKAEMIA
     Dosage: IN TOTAL, FIRST INDUCTION
     Route: 042
     Dates: start: 20170904, end: 20170904
  2. SPIRICORT [Concomitant]
     Active Substance: PREDNISOLONE
     Indication: PRODUCT USED FOR UNKNOWN INDICATION
     Route: 048
     Dates: start: 20170828, end: 20170917
  3. SOLU-MEDROL [Concomitant]
     Active Substance: METHYLPREDNISOLONE SODIUM SUCCINATE
     Indication: SUPPORTIVE CARE
     Route: 065
  4. METHOTREXATE. [Suspect]
     Active Substance: METHOTREXATE
     Dosage: IN TOTAL, FIRST INDUCTION
     Route: 037
     Dates: start: 20170904, end: 20170904
  5. TAVEGYL [Concomitant]
     Active Substance: CLEMASTINE FUMARATE
     Indication: SUPPORTIVE CARE
     Route: 065
  6. ONDANSETRON [Concomitant]
     Active Substance: ONDANSETRON
     Indication: ANTIEMETIC SUPPORTIVE CARE
     Route: 065
  7. VINCRISTINE [Suspect]
     Active Substance: VINCRISTINE
     Dosage: IN TOTAL, FIRST INDUCTION
     Route: 042
     Dates: start: 20170911, end: 20170911
  8. DAUNOBLASTIN [Suspect]
     Active Substance: DAUNORUBICIN HYDROCHLORIDE
     Indication: ACUTE LYMPHOCYTIC LEUKAEMIA
     Dosage: FIRST INDUCTION
     Route: 042
     Dates: start: 20170904, end: 20170906
  9. DAUNOBLASTIN [Suspect]
     Active Substance: DAUNORUBICIN HYDROCHLORIDE
     Dosage: SECOND INDUCTION
     Route: 042
     Dates: start: 20170918, end: 20170919
  10. ELYFEM 30 [Concomitant]
     Indication: PRODUCT USED FOR UNKNOWN INDICATION
     Route: 065
     Dates: start: 20170830
  11. ZYLORIC [Concomitant]
     Active Substance: ALLOPURINOL
     Indication: SUPPORTIVE CARE
     Route: 048
  12. UROMITEXAN 400 ML, L?SUNG ZUR INTRAVEN?SEN ANWENDUNG [Suspect]
     Active Substance: MESNA
     Dosage: IN TOTAL, SECOND INDUCTION
     Route: 042
     Dates: start: 20170918, end: 20170918
  13. ENDOXAN 1 G. TROCKENSUBSTANZ ZUR INTRAVEN?SEN INFUSION [Suspect]
     Active Substance: CYCLOPHOSPHAMIDE
     Indication: ACUTE LYMPHOCYTIC LEUKAEMIA
     Dosage: IN TOTAL, FIRST INDUCTION.
     Route: 042
     Dates: start: 20170904, end: 20170904
  14. MABTHERA [Suspect]
     Active Substance: RITUXIMAB
     Dosage: IN TOTAL, SECOND INDUCTION
     Route: 042
     Dates: start: 20170921, end: 20170921
  15. ASPARAGINASE [Suspect]
     Active Substance: ASPARAGINASE
     Dosage: IN TOTAL, SECOND INDUCTION
     Route: 042
     Dates: start: 20170925, end: 20170925
  16. FORTECORTIN [Concomitant]
     Active Substance: DEXAMETHASONE
     Indication: ANTIEMETIC SUPPORTIVE CARE
     Route: 065
  17. FILGRASTIM [Concomitant]
     Active Substance: FILGRASTIM
     Indication: SUPPORTIVE CARE
     Route: 065
  18. MABTHERA [Suspect]
     Active Substance: RITUXIMAB
     Indication: ACUTE LYMPHOCYTIC LEUKAEMIA
     Dosage: IN TOTAL
     Route: 042
     Dates: start: 20170831, end: 20170831
  19. MABTHERA [Suspect]
     Active Substance: RITUXIMAB
     Dosage: IN TOTAL, FIRST INDUCTION
     Route: 042
     Dates: start: 20170905, end: 20170905
  20. CYTOSAR [Suspect]
     Active Substance: CYTARABINE
     Indication: ACUTE LYMPHOCYTIC LEUKAEMIA
     Dosage: IN TOTAL, FIRST INDUCTION
     Route: 037
     Dates: start: 20170904, end: 20170904
  21. ASPARAGINASE [Suspect]
     Active Substance: ASPARAGINASE
     Indication: ACUTE LYMPHOCYTIC LEUKAEMIA
     Dosage: IN TOTAL, SECOND INDUCTION
     Route: 042
     Dates: start: 20170923, end: 20170923
  22. PRIMPERAN [Concomitant]
     Active Substance: METOCLOPRAMIDE HYDROCHLORIDE
     Indication: SUPPORTIVE CARE
     Route: 065
  23. ENDOXAN 1 G. TROCKENSUBSTANZ ZUR INTRAVEN?SEN INFUSION [Suspect]
     Active Substance: CYCLOPHOSPHAMIDE
     Dosage: IN TOTAL, SECOND INDUCTION.
     Route: 042
     Dates: start: 20170904, end: 20170918
  24. METHOTREXATE. [Suspect]
     Active Substance: METHOTREXATE
     Indication: ACUTE LYMPHOCYTIC LEUKAEMIA
     Dosage: IN TOTAL
     Route: 037
     Dates: start: 20170830, end: 20170830
  25. METHOTREXATE. [Suspect]
     Active Substance: METHOTREXATE
     Dosage: IN TOTAL, FIRST INDUCTION
     Route: 037
     Dates: start: 20170912, end: 20170912
  26. CYTOSAR [Suspect]
     Active Substance: CYTARABINE
     Dosage: IN TOTAL, FIRST INDUCTION
     Route: 037
     Dates: start: 20170912, end: 20170912
  27. VINCRISTINE [Suspect]
     Active Substance: VINCRISTINE
     Indication: ACUTE LYMPHOCYTIC LEUKAEMIA
     Dosage: IN TOTAL, FIRST INDUCTION
     Route: 042
     Dates: start: 20170904, end: 20170904
  28. ASPARAGINASE [Suspect]
     Active Substance: ASPARAGINASE
     Dosage: IN TOTAL, SECOND INDUCTION
     Route: 042
     Dates: start: 20170927, end: 20170927
  29. MABTHERA [Suspect]
     Active Substance: RITUXIMAB
     Dosage: IN TOTAL, FIRST INDUCTION
     Route: 042
     Dates: start: 20170912, end: 20170912
  30. VINCRISTINE [Suspect]
     Active Substance: VINCRISTINE
     Dosage: IN TOTAL, SECOND INDUCTION
     Route: 042
     Dates: start: 20170918, end: 20170918
  31. NEXIUM MUPS [Concomitant]
     Active Substance: ESOMEPRAZOLE MAGNESIUM
     Indication: SUPPORTIVE CARE
     Route: 065
  32. DAFALGAN [Concomitant]
     Active Substance: ACETAMINOPHEN
     Indication: SUPPORTIVE CARE
     Route: 065
  33. ZANTAC [Concomitant]
     Active Substance: RANITIDINE HYDROCHLORIDE
     Indication: SUPPORTIVE CARE
     Route: 065

REACTIONS (10)
  - Catheter site haemorrhage [Recovered/Resolved]
  - Disseminated intravascular coagulation [Recovered/Resolved]
  - Bone marrow failure [Recovered/Resolved]
  - Liver disorder [Unknown]
  - Ammonia increased [Recovering/Resolving]
  - Bacillus bacteraemia [Unknown]
  - Neutropenic colitis [Recovered/Resolved]
  - Subileus [Recovered/Resolved]
  - Post procedural haemorrhage [Recovered/Resolved]
  - Enterobacter bacteraemia [Unknown]

NARRATIVE: CASE EVENT DATE: 201709
